FAERS Safety Report 4780360-2 (Version None)
Quarter: 2005Q3

REPORT INFORMATION
  Report Type: 
  Country: None (occurrence: None)
  Receive Date: 20050926
  Receipt Date: 20050914
  Transmission Date: 20060218
  Serious: Yes (Hospitalization, Other)
  Sender: FDA-Public Use
  Company Number: 2005125881

PATIENT
  Age: 74 Year
  Sex: Male
  Weight: 83.9154 kg

DRUGS (14)
  1. TIKOSYN [Suspect]
     Indication: ATRIAL FIBRILLATION
     Dosage: 0.5 MG (0.25 MG, 2 IN 1 D), ORAL
     Route: 048
  2. VYTORIN [Suspect]
     Indication: ILL-DEFINED DISORDER
     Dates: start: 20040101, end: 20050720
  3. COREG [Concomitant]
  4. IMDUR [Concomitant]
  5. COUMADIN [Concomitant]
  6. MYSOLINE ^ASTRA^ (PRIMIDONE) [Concomitant]
  7. NITROQUICK (GLYCERIL TRINITRATE) [Concomitant]
  8. METAMUCIL-2 [Concomitant]
  9. ASPIRIN [Concomitant]
  10. FORADIL [Concomitant]
  11. TYLENOL (PARACETAOL) [Concomitant]
  12. ATROVENT [Concomitant]
  13. RIBLELFAN (AMINOPHENAZONE, NOSCAPINE, QUININE, SULFAMETHOXYPYRIDAZINE) [Concomitant]
  14. LISINOPRIL [Concomitant]

REACTIONS (7)
  - ATRIAL FIBRILLATION [None]
  - BLOOD CREATININE INCREASED [None]
  - DIARRHOEA [None]
  - DIZZINESS [None]
  - MUSCLE FATIGUE [None]
  - RENAL VEIN OCCLUSION [None]
  - VENTRICULAR FIBRILLATION [None]
